FAERS Safety Report 5179942-8 (Version None)
Quarter: 2006Q4

REPORT INFORMATION
  Report Type: 
  Country: None (occurrence: None)
  Receive Date: 20061211
  Receipt Date: 20061129
  Transmission Date: 20070319
  Serious: Yes (Hospitalization)
  Sender: FDA-Public Use
  Company Number: 2006147961

PATIENT
  Age: 84 Year
  Sex: Female

DRUGS (6)
  1. ATORVASTATIN CALCIUM [Suspect]
     Indication: HYPERCHOLESTEROLAEMIA
     Dosage: 10 MG, ORAL
     Route: 048
  2. ARICEPT [Suspect]
     Dosage: 10 MG (1 IN 1 D), ORAL
     Route: 048
  3. ASPEGIC 1000 [Suspect]
     Dosage: 100 MG, ORAL
     Route: 048
     Dates: start: 20060523, end: 20060707
  4. LASIX [Suspect]
     Indication: CARDIAC FAILURE
     Dosage: 40 MG, ORAL
     Route: 048
     Dates: start: 20060523
  5. LEVOTHYROXINE SODIUM [Suspect]
     Indication: HYPOTHYROIDISM
     Dosage: 100 MCG, ORAL
     Route: 048
  6. LERCANIDIPINE [Suspect]
     Indication: HYPERTENSION
     Dosage: 20 MG, ORAL
     Route: 048

REACTIONS (4)
  - ANAEMIA [None]
  - CARDIAC FAILURE [None]
  - OEDEMA PERIPHERAL [None]
  - ULCER HAEMORRHAGE [None]
